FAERS Safety Report 7036715-9 (Version None)
Quarter: 2010Q4

REPORT INFORMATION
  Report Type: 
  Country: None (occurrence: None)
  Receive Date: 20101011
  Receipt Date: 20101004
  Transmission Date: 20110411
  Serious: No
  Sender: FDA-Public Use
  Company Number: US-BIOGENIDEC-2010BI034351

PATIENT
  Sex: Female

DRUGS (2)
  1. AVONEX [Suspect]
     Indication: MULTIPLE SCLEROSIS
     Route: 030
     Dates: start: 19960501
  2. AVONEX [Suspect]
     Route: 030
     Dates: end: 20090101

REACTIONS (5)
  - ABASIA [None]
  - ASTHENIA [None]
  - FATIGUE [None]
  - PAIN [None]
  - POSTURE ABNORMAL [None]
